FAERS Safety Report 25529702 (Version 2)
Quarter: 2025Q3

REPORT INFORMATION
  Report Type: Report from Study
  Country: CA (occurrence: CA)
  Receive Date: 20250708
  Receipt Date: 20250724
  Transmission Date: 20251021
  Serious: Yes (Other)
  Sender: SAMSUNG BIOEPIS
  Company Number: CA-SAMSUNG BIOEPIS-SB-2025-23286

PATIENT
  Age: 79 Year
  Sex: Female

DRUGS (2)
  1. ETANERCEPT [Suspect]
     Active Substance: ETANERCEPT
     Indication: Rheumatoid arthritis
     Dates: start: 20240114
  2. ETANERCEPT [Suspect]
     Active Substance: ETANERCEPT
     Dates: start: 20250716

REACTIONS (2)
  - Squamous cell carcinoma [Not Recovered/Not Resolved]
  - Impaired healing [Not Recovered/Not Resolved]
